FAERS Safety Report 15155917 (Version 1)
Quarter: 2018Q3

REPORT INFORMATION
  Report Type: Spontaneous
  Country: DE (occurrence: DE)
  Receive Date: 20180717
  Receipt Date: 20180717
  Transmission Date: 20181010
  Serious: Yes (Death, Hospitalization)
  Sender: FDA-Public Use
  Company Number: DE-US WORLDMEDS, LLC-STA_00019725

PATIENT
  Age: 80 Year
  Sex: Female

DRUGS (4)
  1. CLOZAPIN [Concomitant]
     Active Substance: CLOZAPINE
     Indication: HALLUCINATION
     Dates: start: 200808, end: 20110405
  2. SIMVASTATIN. [Concomitant]
     Active Substance: SIMVASTATIN
     Indication: HYPERLIPIDAEMIA
     Dates: start: 2007, end: 20110405
  3. APOMORPHINE HYDROCHLORIDE [Suspect]
     Active Substance: APOMORPHINE HYDROCHLORIDE
     Indication: PARKINSON^S DISEASE
     Dates: start: 2005, end: 20110405
  4. MADOPAR LT [Concomitant]
     Active Substance: BENSERAZIDE HYDROCHLORIDE\LEVODOPA
     Indication: PARKINSON^S DISEASE
     Dosage: 100/25 ONCE DAILY
     Dates: start: 2003, end: 20110405

REACTIONS (3)
  - Death [Fatal]
  - Cardiopulmonary failure [Unknown]
  - Pneumonia [Unknown]

NARRATIVE: CASE EVENT DATE: 20110325
